FAERS Safety Report 11283108 (Version 1)
Quarter: 2015Q3

REPORT INFORMATION
  Report Type: Spontaneous
  Country: US (occurrence: None)
  Receive Date: 20150717
  Receipt Date: 20150717
  Transmission Date: 20151125
  Serious: Yes (Other)
  Sender: FDA-Public Use
  Company Number: None

PATIENT
  Age: 46 Year
  Sex: Female
  Weight: 57.15 kg

DRUGS (20)
  1. COCONUT. [Concomitant]
     Active Substance: COCONUT
  2. HUPERZINE A [Concomitant]
     Active Substance: HUPERZINE A
  3. OREGANO OIL [Concomitant]
  4. PREVAGEN [Concomitant]
     Active Substance: DIETARY SUPPLEMENT
  5. RUBY OIL [Concomitant]
  6. PS100 [Concomitant]
  7. TURMERIC [Concomitant]
     Active Substance: TURMERIC
  8. VITAMIN C [Concomitant]
     Active Substance: ASCORBIC ACID
  9. OMEGA KRILL [Concomitant]
  10. VITAMIN E [Concomitant]
     Active Substance: .ALPHA.-TOCOPHEROL
  11. ORGANIC CHERRY PURE [Concomitant]
  12. LYSINE [Concomitant]
     Active Substance: LYSINE
  13. BIOTIN [Concomitant]
     Active Substance: BIOTIN
  14. SUBOXONE [Suspect]
     Active Substance: BUPRENORPHINE HYDROCHLORIDE\NALOXONE HYDROCHLORIDE
     Indication: PAIN
     Dosage: 8/2MG, 16/4MG, 24/6MG, TAKEN UNDER THE TONGUE
     Route: 060
     Dates: start: 20150611, end: 20150712
  15. VITAMIN D [Concomitant]
     Active Substance: CHOLECALCIFEROL
  16. CLA [Concomitant]
  17. WOBENZYME N [Concomitant]
  18. VIT B [Concomitant]
     Active Substance: VITAMINS
  19. CRANBERRY. [Concomitant]
     Active Substance: CRANBERRY
  20. ASTAXANTHAN [Concomitant]

REACTIONS (6)
  - Excessive eye blinking [None]
  - Abdominal pain upper [None]
  - Flatulence [None]
  - Muscle spasms [None]
  - Nerve compression [None]
  - Urinary tract infection [None]

NARRATIVE: CASE EVENT DATE: 20150611
